FAERS Safety Report 10882783 (Version 1)
Quarter: 2015Q1

REPORT INFORMATION
  Report Type: Spontaneous
  Country: DE (occurrence: DE)
  Receive Date: 20150303
  Receipt Date: 20150303
  Transmission Date: 20150721
  Serious: Yes (Other)
  Sender: FDA-Public Use
  Company Number: DE-MYLANLABS-2015M1006439

PATIENT

DRUGS (5)
  1. HYPERICUM /01166801/ [Suspect]
     Active Substance: HYPERICUM PERFORATUM
     Indication: DEPRESSION
     Route: 065
  2. EPIRUBICIN [Suspect]
     Active Substance: EPIRUBICIN
     Indication: BREAST CANCER
     Dosage: SIX CYCLES
     Route: 065
  3. SERTRALINE [Suspect]
     Active Substance: SERTRALINE HYDROCHLORIDE
     Indication: DEPRESSION
     Dosage: 75 MG/DL
     Route: 065
  4. TAMOXIFEN [Suspect]
     Active Substance: TAMOXIFEN
     Indication: BREAST CANCER
     Dosage: SIX CYCLES
     Route: 065
     Dates: start: 200812
  5. DOCETAXEL. [Suspect]
     Active Substance: DOCETAXEL
     Indication: BREAST CANCER
     Dosage: SIX CYCLES
     Route: 065

REACTIONS (18)
  - Polyneuropathy [Unknown]
  - Libido decreased [None]
  - Menopausal symptoms [Unknown]
  - Sleep disorder [Unknown]
  - Anxiety [None]
  - Initial insomnia [None]
  - Arthropathy [Unknown]
  - Cognitive disorder [None]
  - General physical health deterioration [None]
  - Apathy [None]
  - Disturbance in attention [None]
  - Hyperhidrosis [None]
  - Depression [Unknown]
  - Fatigue [Unknown]
  - Vulvovaginal dryness [None]
  - Burning sensation [None]
  - Memory impairment [None]
  - Hot flush [None]
